FAERS Safety Report 9945013 (Version 2)
Quarter: 2014Q1

REPORT INFORMATION
  Report Type: Report from Study
  Country: US (occurrence: US)
  Receive Date: 20140303
  Receipt Date: 20140303
  Transmission Date: 20141002
  Serious: No
  Sender: FDA-Public Use
  Company Number: US-ABBVIE-13P-163-1049077-00

PATIENT
  Sex: Female
  Weight: 89.89 kg

DRUGS (7)
  1. HUMIRA [Suspect]
     Indication: ANKYLOSING SPONDYLITIS
     Dates: start: 201209, end: 201301
  2. LASIX [Concomitant]
     Indication: HYPERTENSION
  3. METOPROLOL [Concomitant]
     Indication: HYPERTENSION
  4. METFORMIN [Concomitant]
     Indication: DIABETES MELLITUS
  5. CYMBALTA [Concomitant]
     Indication: DEPRESSION
  6. VITAMIN B12 [Concomitant]
     Indication: SUPPLEMENTATION THERAPY
  7. VITAMIN D NOS [Concomitant]
     Indication: SUPPLEMENTATION THERAPY

REACTIONS (5)
  - Gastric disorder [Unknown]
  - Hepatomegaly [Unknown]
  - White blood cell count increased [Unknown]
  - Nausea [Unknown]
  - Blood glucose decreased [Unknown]
